FAERS Safety Report 6097247-8 (Version None)
Quarter: 2009Q1

REPORT INFORMATION
  Report Type: 
  Country: None (occurrence: None)
  Receive Date: 20090227
  Receipt Date: 20090218
  Transmission Date: 20090719
  Serious: Yes (Hospitalization)
  Sender: FDA-Public Use
  Company Number: B0561577A

PATIENT
  Sex: Female

DRUGS (2)
  1. TYVERB [Suspect]
     Route: 048
  2. XELODA [Suspect]

REACTIONS (1)
  - NEOPLASM MALIGNANT [None]
